FAERS Safety Report 4524905-6 (Version None)
Quarter: 2004Q4

REPORT INFORMATION
  Report Type: 
  Country: None (occurrence: None)
  Receive Date: 20041210
  Receipt Date: 20041101
  Transmission Date: 20050328
  Serious: Yes (Other)
  Sender: FDA-Public Use
  Company Number: M2004-1813

PATIENT
  Age: 32 Year
  Sex: Female

DRUGS (5)
  1. METOCLOPRAMIDE [Suspect]
     Indication: NAUSEA
     Dosage: 10MG (2 DOSE) IV
     Route: 042
  2. VENLAFAXINE HCL [Suspect]
     Indication: MAJOR DEPRESSION
     Dosage: 150MG O.M. + 75MG O.N
  3. ACETAMINOPHEN [Concomitant]
  4. INDOMETHACIN [Concomitant]
  5. MORPHINE [Concomitant]

REACTIONS (1)
  - SEROTONIN SYNDROME [None]
